FAERS Safety Report 6261447-4 (Version None)
Quarter: 2009Q3

REPORT INFORMATION
  Report Type: 
  Country: None (occurrence: None)
  Receive Date: 20090709
  Receipt Date: 20090629
  Transmission Date: 20100115
  Serious: Yes (Hospitalization)
  Sender: FDA-Public Use
  Company Number: US-MYLANLABS-2009S1009428

PATIENT
  Age: 43 Year
  Sex: Female
  Weight: 68.04 kg

DRUGS (10)
  1. FENTANYL TRANSDERMAL SYSTEM [Suspect]
     Indication: ABDOMINAL PAIN
     Dosage: CHANGED Q48H
     Route: 062
     Dates: start: 20050101
  2. FENTANYL TRANSDERMAL SYSTEM [Suspect]
     Dosage: CHANGED Q48H
     Route: 062
     Dates: start: 20050101
  3. LIBRAX [Concomitant]
     Indication: PANCREATIC INJURY
     Route: 048
  4. ROXANOL [Concomitant]
     Indication: PANCREATIC INJURY
     Dosage: 20MG/ML SOLUTION
     Route: 048
  5. ZOVIRAX [Concomitant]
     Route: 061
  6. PHENERGAN [Concomitant]
     Indication: PANCREATIC INJURY
     Route: 048
  7. COMPAZINE [Concomitant]
     Indication: PANCREATIC INJURY
     Route: 048
  8. CELEXA [Concomitant]
     Indication: PANCREATIC INJURY
     Route: 048
  9. CLONAZEPAM [Concomitant]
     Indication: PANCREATIC INJURY
     Route: 048
  10. ZOFRAN [Concomitant]
     Indication: PANCREATIC INJURY
     Route: 048

REACTIONS (6)
  - ABDOMINAL PAIN [None]
  - DRUG INEFFECTIVE [None]
  - DRUG SCREEN NEGATIVE [None]
  - NAUSEA [None]
  - VOMITING [None]
  - WITHDRAWAL SYNDROME [None]
